FAERS Safety Report 8029983-8 (Version None)
Quarter: 2012Q1

REPORT INFORMATION
  Report Type: 
  Country: None (occurrence: None)
  Receive Date: 20120109
  Receipt Date: 20111228
  Transmission Date: 20120608
  Serious: Yes (Other)
  Sender: FDA-Public Use
  Company Number: NL-GENZYME-CAMP-1002055

PATIENT

DRUGS (2)
  1. CAMPATH [Suspect]
     Indication: HEPATOSPLENIC T-CELL LYMPHOMA
     Dosage: UNK, 3 TO 30 MG
     Route: 042
  2. CAMPATH [Suspect]
     Dosage: 30 MG UNK, 11 DOSES ADMINISTERED
     Route: 042

REACTIONS (4)
  - DECREASED APPETITE [None]
  - GENERAL PHYSICAL HEALTH DETERIORATION [None]
  - PYREXIA [None]
  - FATIGUE [None]
